FAERS Safety Report 5205913-9 (Version None)
Quarter: 2007Q1

REPORT INFORMATION
  Report Type: 
  Country: None (occurrence: None)
  Receive Date: 20070111
  Receipt Date: 20060601
  Transmission Date: 20070707
  Serious: Yes (Congenital Anomaly)
  Sender: FDA-Public Use
  Company Number: MX-AVENTIS-200615002GDDC

PATIENT
  Sex: Female
  Weight: 3.6 kg

DRUGS (3)
  1. ARAVA [Suspect]
     Route: 048
     Dates: start: 20030101, end: 20051101
  2. DEFLAZACORT [Suspect]
     Route: 048
     Dates: start: 19980101
  3. CHLOROQUINE [Concomitant]
     Dosage: DOSE: UNK
     Dates: end: 20051001

REACTIONS (2)
  - CEREBRAL VENTRICLE DILATATION [None]
  - DRUG EXPOSURE DURING PREGNANCY [None]
